FAERS Safety Report 8483020-X (Version None)
Quarter: 2012Q2

REPORT INFORMATION
  Report Type: 
  Country: None (occurrence: None)
  Receive Date: 20120626
  Receipt Date: 20120614
  Transmission Date: 20120825
  Serious: Yes (Disabling)
  Sender: FDA-Public Use
  Company Number: 2012SP033224

PATIENT
  Age: 63 Year
  Sex: Female

DRUGS (3)
  1. OLSAR PLUS (OLMESARTAN MEDOXOMIL AND HYDROCHLOROTHIAZIDE) [Concomitant]
  2. AULIN [Concomitant]
  3. BETAMETHASONE SODIUM PHOSPHATE [Suspect]
     Indication: BONE PAIN
     Dates: start: 20120320, end: 20120320

REACTIONS (4)
  - FATIGUE [None]
  - SWELLING [None]
  - DYSPNOEA [None]
  - SWELLING FACE [None]
